FAERS Safety Report 13988909 (Version 3)
Quarter: 2021Q1

REPORT INFORMATION
  Report Type: Spontaneous
  Country: US (occurrence: US)
  Receive Date: 20170919
  Receipt Date: 20210127
  Transmission Date: 20210419
  Serious: Yes (Other)
  Sender: FDA-Public Use
  Company Number: US-BIOGEN-2017BI00457362

PATIENT
  Sex: Male

DRUGS (3)
  1. TECFIDERA [Suspect]
     Active Substance: DIMETHYL FUMARATE
     Route: 050
     Dates: start: 20170607
  2. TECFIDERA [Suspect]
     Active Substance: DIMETHYL FUMARATE
     Route: 048
     Dates: start: 2016
  3. TECFIDERA [Suspect]
     Active Substance: DIMETHYL FUMARATE
     Indication: MULTIPLE SCLEROSIS
     Route: 050
     Dates: start: 2015

REACTIONS (10)
  - Multiple sclerosis relapse [Recovered/Resolved]
  - Dry mouth [Not Recovered/Not Resolved]
  - Teeth brittle [Unknown]
  - Flushing [Recovered/Resolved]
  - Multiple allergies [Unknown]
  - Immune system disorder [Unknown]
  - Memory impairment [Not Recovered/Not Resolved]
  - Loose tooth [Recovered/Resolved]
  - Abdominal pain [Recovered/Resolved]
  - Blindness [Unknown]
